FAERS Safety Report 17709446 (Version 2)
Quarter: 2020Q2

REPORT INFORMATION
  Report Type: Spontaneous
  Country: BR (occurrence: BR)
  Receive Date: 20200427
  Receipt Date: 20200619
  Transmission Date: 20200714
  Serious: Yes (Other)
  Sender: FDA-Public Use
  Company Number: BR-ADVANZ PHARMA-202004003877

PATIENT

DRUGS (15)
  1. AZITHROMYCIN ANHYDROUS. [Concomitant]
     Active Substance: AZITHROMYCIN ANHYDROUS
     Dosage: 500 MG
     Dates: start: 20200331
  2. METAMIZOLE SODIUM [Concomitant]
     Active Substance: METAMIZOLE SODIUM
     Dosage: 1 G
     Dates: start: 20200331
  3. ENOXAPARIN SODIUM. [Concomitant]
     Active Substance: ENOXAPARIN SODIUM
     Dosage: 40MG/0.4ML
     Dates: start: 20200331
  4. ONDANTOR [Concomitant]
     Dosage: 8 MG
     Dates: start: 20200331
  5. NITAZOXANID [Concomitant]
     Dosage: 500 MG
     Dates: start: 20200331
  6. BISACODYL. [Concomitant]
     Active Substance: BISACODYL
     Dosage: 5 MG
     Dates: start: 20200401
  7. ETOMIDATE. [Concomitant]
     Active Substance: ETOMIDATE
     Dosage: 20 MG
     Dates: start: 20200402
  8. HYDROXYCHLOROQUINE [Suspect]
     Active Substance: HYDROXYCHLOROQUINE
     Indication: PRODUCT USE IN UNAPPROVED INDICATION
  9. TOCILIZUMAB. [Concomitant]
     Active Substance: TOCILIZUMAB
     Dosage: 200 MG
     Dates: start: 20200402
  10. CHOLECALCIFEROL [Concomitant]
     Active Substance: CHOLECALCIFEROL
     Dosage: UNK 3300IU/MI
     Dates: start: 20200331
  11. HYDROXYCHLOROQUINE [Suspect]
     Active Substance: HYDROXYCHLOROQUINE
     Indication: COVID-19
     Dosage: 600 MG, QD, COATED TABLET
     Route: 048
     Dates: start: 20200401, end: 20200403
  12. MIDAZOLAM. [Concomitant]
     Active Substance: MIDAZOLAM
     Dosage: 5 MG
     Dates: start: 20200402
  13. FUROSEMIDE. [Concomitant]
     Active Substance: FUROSEMIDE
     Dosage: 20 MG
     Dates: start: 20200403
  14. CEFTRIAXONE. [Concomitant]
     Active Substance: CEFTRIAXONE
     Dosage: 1 G
     Dates: start: 20200331
  15. ESOMEPRAZOL [Concomitant]
     Active Substance: ESOMEPRAZOLE
     Dosage: 40 MG
     Dates: start: 20200331

REACTIONS (3)
  - Blood creatine phosphokinase abnormal [Recovered/Resolved]
  - Off label use [Unknown]
  - Rhabdomyolysis [Not Recovered/Not Resolved]

NARRATIVE: CASE EVENT DATE: 20200401
